FAERS Safety Report 9744850 (Version 1)
Quarter: 2013Q4

REPORT INFORMATION
  Report Type: Spontaneous
  Country: FR (occurrence: FR)
  Receive Date: 20131211
  Receipt Date: 20131211
  Transmission Date: 20140711
  Serious: Yes (Other)
  Sender: FDA-Public Use
  Company Number: FR-ROCHE-1311993

PATIENT
  Age: 40 Year
  Sex: Male

DRUGS (16)
  1. CYMEVAN [Suspect]
     Indication: CYTOMEGALOVIRUS VIRAEMIA
     Route: 048
     Dates: start: 20130614, end: 20130707
  2. BACTRIM FORTE [Suspect]
     Indication: INFECTION
     Route: 048
     Dates: start: 20130613, end: 201307
  3. ALINIA [Suspect]
     Indication: GASTROENTERITIS CRYPTOSPORIDIAL
     Dosage: 500 MG
     Route: 048
     Dates: start: 20130613, end: 20130620
  4. PURINETHOL [Suspect]
     Indication: CHRONIC MYELOMONOCYTIC LEUKAEMIA
     Route: 048
     Dates: start: 20130531, end: 20130620
  5. ROVALCYTE [Concomitant]
     Route: 048
     Dates: start: 20130707
  6. HYDREA [Concomitant]
     Route: 065
     Dates: start: 20130509, end: 20130602
  7. HYDREA [Concomitant]
     Route: 065
     Dates: start: 20130620
  8. AUGMENTIN [Concomitant]
     Route: 065
     Dates: start: 20130522, end: 20130526
  9. HEPARIN [Concomitant]
     Route: 065
     Dates: start: 20130523
  10. VANCOMYCINE [Concomitant]
     Route: 065
     Dates: start: 20130526, end: 20130530
  11. TIENAM [Concomitant]
     Route: 065
     Dates: start: 20130530, end: 20130605
  12. AMIKLIN [Concomitant]
     Route: 065
     Dates: start: 20130530
  13. DALACINE [Concomitant]
     Route: 065
     Dates: start: 20130530, end: 20130606
  14. TAZOCILLINE [Concomitant]
     Route: 065
     Dates: start: 20130605, end: 20130612
  15. PIPERACILLINE [Concomitant]
     Route: 065
     Dates: start: 20130612
  16. MORPHINE [Concomitant]
     Route: 065
     Dates: start: 20130708

REACTIONS (1)
  - Liver disorder [Recovered/Resolved]
